APPROVED DRUG PRODUCT: PINDOLOL
Active Ingredient: PINDOLOL
Strength: 10MG
Dosage Form/Route: TABLET;ORAL
Application: A209866 | Product #002
Applicant: ZYDUS PHARMACEUTICALS USA INC
Approved: Aug 18, 2017 | RLD: No | RS: No | Type: DISCN